FAERS Safety Report 8414738-2 (Version None)
Quarter: 2012Q2

REPORT INFORMATION
  Report Type: 
  Country: None (occurrence: None)
  Receive Date: 20120605
  Receipt Date: 20120531
  Transmission Date: 20120825
  Serious: Yes (Hospitalization)
  Sender: FDA-Public Use
  Company Number: US-BAYER-2011-052342

PATIENT
  Age: 28 Year
  Sex: Female
  Weight: 56.689 kg

DRUGS (13)
  1. AMOXICILLIN [Concomitant]
     Indication: HELICOBACTER GASTRITIS
     Dosage: 2 PILLS 2 TIMES A DAY FOR 14 DAYS
     Dates: start: 20080501, end: 20080601
  2. ALBUTEROL [Concomitant]
     Indication: ASTHMA
     Dosage: UNK
     Route: 045
     Dates: start: 20080527
  3. CLARITHROMYCIN [Concomitant]
     Dosage: 500 MG, UNK
     Route: 048
     Dates: start: 20080527
  4. YAZ [Suspect]
     Indication: CONTRACEPTION
  5. AMOXICILLIN [Concomitant]
     Dosage: 500 MG, UNK
     Route: 048
     Dates: start: 20080527
  6. YASMIN [Suspect]
     Indication: CONTRACEPTION
     Dosage: UNK
     Dates: start: 20051001, end: 20080701
  7. ALBUTEROL SULFATE [Concomitant]
     Dosage: UNK
     Dates: start: 20071226, end: 20080710
  8. IBUPROFEN [Concomitant]
     Dosage: UNK
     Dates: start: 20050218, end: 20080426
  9. ACETAMINOPHEN W/ CODEINE [Concomitant]
     Indication: PAIN
     Dosage: 1 TABLET EVERY 4 HOURS AS NEEDED
     Route: 048
     Dates: start: 20080527
  10. DROSPIRENONE AND ETHINYL ESTRADIOL [Suspect]
     Indication: CONTRACEPTION
     Dosage: UNK
     Dates: start: 20081001, end: 20090401
  11. IBUPROFEN [Concomitant]
     Indication: HEADACHE
     Dosage: UNK
     Dates: start: 20020101, end: 20080101
  12. HYDROCODONE BITARTRATE + ACETAMINOPHEN [Concomitant]
     Indication: PAIN
     Dosage: UNK
     Dates: start: 20080516
  13. CLARITHROMYCIN [Concomitant]
     Indication: HELICOBACTER GASTRITIS
     Dosage: 1 TABLET 2 TIMES A DAY FOR 14 DAYS
     Dates: start: 20080527

REACTIONS (12)
  - INJURY [None]
  - PAIN [None]
  - ABDOMINAL DISTENSION [None]
  - DYSPEPSIA [None]
  - MENTAL DISORDER [None]
  - FLATULENCE [None]
  - CONSTIPATION [None]
  - SCAR [None]
  - CHOLECYSTECTOMY [None]
  - DEPRESSION [None]
  - DIARRHOEA [None]
  - ANXIETY [None]
